FAERS Safety Report 23414505 (Version 4)
Quarter: 2024Q2

REPORT INFORMATION
  Report Type: Spontaneous
  Country: DE (occurrence: DE)
  Receive Date: 20240118
  Receipt Date: 20240410
  Transmission Date: 20240716
  Serious: Yes (Hospitalization)
  Sender: FDA-Public Use
  Company Number: DE-CHIESI-2024CHF00174

PATIENT
  Sex: Female
  Weight: 0.58 kg

DRUGS (5)
  1. CUROSURF [Suspect]
     Active Substance: PORACTANT ALFA
     Indication: Low birth weight baby
     Dosage: 120 MILLIGRAM
     Route: 007
     Dates: start: 20231224, end: 20231224
  2. CUROSURF [Suspect]
     Active Substance: PORACTANT ALFA
     Indication: Off label use
  3. CAFFEINE [Concomitant]
     Active Substance: CAFFEINE
     Indication: Product used for unknown indication
     Dosage: 10 MILLIGRAM
     Dates: start: 20231224, end: 20231224
  4. SODIUM CHLORIDE [Concomitant]
     Active Substance: SODIUM CHLORIDE
     Indication: Product used for unknown indication
     Dosage: 5 MILLILITER
     Dates: start: 20231224, end: 20231224
  5. AMPICILLIN [Concomitant]
     Active Substance: AMPICILLIN
     Indication: Infection
     Dosage: 25 MILLIGRAM
     Dates: start: 202312, end: 202312

REACTIONS (8)
  - General physical health deterioration [Recovered/Resolved]
  - Blood pH decreased [Recovered/Resolved]
  - Carbon dioxide increased [Recovered/Resolved]
  - Prescribed overdose [Recovered/Resolved]
  - Product complaint [Recovered/Resolved]
  - Off label use [Recovered/Resolved]
  - Off label use [Recovered/Resolved]
  - Off label use [Recovered/Resolved]

NARRATIVE: CASE EVENT DATE: 20231224
